FAERS Safety Report 5750169-1 (Version None)
Quarter: 2008Q2

REPORT INFORMATION
  Report Type: 
  Country: None (occurrence: None)
  Receive Date: 20080527
  Receipt Date: 20080515
  Transmission Date: 20081010
  Serious: Yes (Hospitalization, Other)
  Sender: FDA-Public Use
  Company Number: ES-PFIZER INC-2008042361

PATIENT
  Age: 61 Year
  Sex: Male

DRUGS (2)
  1. PREGABALIN [Suspect]
     Indication: NEURALGIA
     Dates: start: 20060317, end: 20060331
  2. ALL OTHER THERAPEUTIC PRODUCTS [Concomitant]

REACTIONS (5)
  - ASTHENIA [None]
  - CHOLESTASIS [None]
  - DIZZINESS [None]
  - SOMNOLENCE [None]
  - VISION BLURRED [None]
